FAERS Safety Report 5736188-X (Version None)
Quarter: 2008Q2

REPORT INFORMATION
  Report Type: 
  Country: None (occurrence: None)
  Receive Date: 20080509
  Receipt Date: 20080509
  Transmission Date: 20081010
  Serious: Yes (Hospitalization)
  Sender: FDA-Public Use
  Company Number: None

PATIENT
  Sex: Female
  Weight: 81.36 kg

DRUGS (1)
  1. PACLITAXEL [Suspect]
     Dosage: 179 MG

REACTIONS (4)
  - ANOREXIA [None]
  - DEHYDRATION [None]
  - HYPOKALAEMIA [None]
  - ILEUS [None]
